FAERS Safety Report 7766419-6 (Version None)
Quarter: 2011Q3

REPORT INFORMATION
  Report Type: 
  Country: None (occurrence: None)
  Receive Date: 20110922
  Receipt Date: 20110913
  Transmission Date: 20111222
  Serious: Yes (Hospitalization)
  Sender: FDA-Public Use
  Company Number: US-BIOGENIDEC-2011BI035393

PATIENT
  Age: 50 Year
  Sex: Female

DRUGS (6)
  1. TYSABRI [Suspect]
     Route: 042
     Dates: start: 20071108, end: 20071108
  2. TYSABRI [Suspect]
     Route: 042
     Dates: start: 20061108, end: 20061206
  3. TYSABRI [Suspect]
     Route: 042
     Dates: start: 20090122, end: 20101022
  4. AVONEX [Concomitant]
     Indication: MULTIPLE SCLEROSIS
     Route: 030
     Dates: start: 20040731
  5. TYSABRI [Suspect]
     Indication: MULTIPLE SCLEROSIS
     Route: 042
     Dates: start: 20110812
  6. TYSABRI [Suspect]
     Route: 042
     Dates: start: 20080618, end: 20081106

REACTIONS (1)
  - PNEUMONIA [None]
